FAERS Safety Report 9248311 (Version 3)
Quarter: 2013Q2

REPORT INFORMATION
  Report Type: Spontaneous
  Country: US (occurrence: US)
  Receive Date: 20130423
  Receipt Date: 20130517
  Transmission Date: 20140414
  Serious: Yes (Other)
  Sender: FDA-Public Use
  Company Number: US-009507513-1304USA010672

PATIENT
  Sex: Female

DRUGS (3)
  1. SINGULAIR [Suspect]
  2. LIPITOR [Suspect]
     Dosage: UNK
  3. ZETIA [Concomitant]

REACTIONS (4)
  - Epistaxis [Unknown]
  - Deafness [Unknown]
  - Ear canal injury [Unknown]
  - Allergic sinusitis [Unknown]
